FAERS Safety Report 4695385-5 (Version None)
Quarter: 2005Q2

REPORT INFORMATION
  Report Type: 
  Country: None (occurrence: None)
  Receive Date: 20050124
  Receipt Date: 20050124
  Transmission Date: 20051028
  Serious: Yes (Life-Threatening, Other)
  Sender: FDA-Public Use
  Company Number: None

PATIENT
  Age: 63 Year
  Sex: Female
  Weight: 94.3482 kg

DRUGS (1)
  1. IMDUR [Suspect]
     Dosage: 80 MG PO QD
     Route: 048

REACTIONS (3)
  - ARRHYTHMIA [None]
  - PALPITATIONS [None]
  - THERAPEUTIC RESPONSE UNEXPECTED WITH DRUG SUBSTITUTION [None]
